FAERS Safety Report 8081980-2 (Version None)
Quarter: 2012Q1

REPORT INFORMATION
  Report Type: 
  Country: None (occurrence: None)
  Receive Date: 20120130
  Receipt Date: 20111118
  Transmission Date: 20120608
  Serious: No
  Sender: FDA-Public Use
  Company Number: US-ABBOTT-11P-163-0876237-00

PATIENT
  Age: 71 Year
  Sex: Male
  Weight: 74.91 kg

DRUGS (2)
  1. LUPRON DEPOT [Suspect]
     Indication: PROSTATE CANCER
     Dates: start: 20111013
  2. VESICARE [Concomitant]
     Indication: HYPERTONIC BLADDER
     Dates: start: 20111108

REACTIONS (3)
  - URINARY INCONTINENCE [None]
  - FAECAL INCONTINENCE [None]
  - MUCOUS STOOLS [None]
